FAERS Safety Report 17135608 (Version 1)
Quarter: 2019Q4

REPORT INFORMATION
  Report Type: Spontaneous
  Country: CA (occurrence: CA)
  Receive Date: 20191210
  Receipt Date: 20191210
  Transmission Date: 20200122
  Serious: Yes (Hospitalization)
  Sender: FDA-Public Use
  Company Number: CA-COVIS PHARMA B.V.-2019COV00305

PATIENT
  Sex: Female

DRUGS (1)
  1. ALVESCO [Suspect]
     Active Substance: CICLESONIDE
     Dosage: 1 UNK
     Route: 055

REACTIONS (6)
  - Joint stiffness [Unknown]
  - Dyspnoea [Unknown]
  - Swelling [Unknown]
  - Obstructive airways disorder [Unknown]
  - Trismus [Unknown]
  - Swelling face [Unknown]
